FAERS Safety Report 19420401 (Version 1)
Quarter: 2021Q2

REPORT INFORMATION
  Report Type: Spontaneous
  Country: CA (occurrence: CA)
  Receive Date: 20210615
  Receipt Date: 20210615
  Transmission Date: 20210717
  Serious: Yes (Death)
  Sender: FDA-Public Use
  Company Number: CA-JNJFOC-20210630509

PATIENT
  Age: 85 Year
  Sex: Female

DRUGS (14)
  1. PANTOPRAZOLE [Concomitant]
     Active Substance: PANTOPRAZOLE
     Dosage: UNK
  2. OMEGA 3?6?9 [FISH OIL] [Concomitant]
     Active Substance: FISH OIL
     Dosage: UNK
  3. RAMIPRIL. [Concomitant]
     Active Substance: RAMIPRIL
     Dosage: UNK
  4. CALCIUM [Concomitant]
     Active Substance: CALCIUM
  5. BISOPROLOL [Concomitant]
     Active Substance: BISOPROLOL
  6. ZOPICLONE [Concomitant]
     Active Substance: ZOPICLONE
     Dosage: UNK
  7. ALENDRONATE [Concomitant]
     Active Substance: ALENDRONATE SODIUM
     Dosage: UNK
  8. FUROSEMIDE. [Concomitant]
     Active Substance: FUROSEMIDE
     Dosage: UNK
     Route: 065
  9. AZOPT [Concomitant]
     Active Substance: BRINZOLAMIDE
     Dosage: UNK
  10. MIRTAZAPINE. [Concomitant]
     Active Substance: MIRTAZAPINE
  11. TRAMACET [TRAMADOL HYDROCHLORIDE] [Concomitant]
     Dosage: UNK
  12. VITAMIN D [VITAMIN D NOS] [Concomitant]
     Active Substance: VITAMIN D NOS
     Dosage: UNK
  13. XALATAN [Concomitant]
     Active Substance: LATANOPROST
  14. XARELTO [Suspect]
     Active Substance: RIVAROXABAN
     Indication: ATRIAL FIBRILLATION
     Dosage: 20 MG
     Route: 048

REACTIONS (7)
  - Intestinal obstruction [Fatal]
  - General physical health deterioration [Fatal]
  - Insomnia [Fatal]
  - Mood altered [Fatal]
  - Aphasia [Fatal]
  - Haemorrhage intracranial [Fatal]
  - Confusional state [Fatal]
